FAERS Safety Report 16707583 (Version 1)
Quarter: 2019Q3

REPORT INFORMATION
  Report Type: Spontaneous
  Country: US (occurrence: US)
  Receive Date: 20190815
  Receipt Date: 20190815
  Transmission Date: 20191004
  Serious: No
  Sender: FDA-Public Use
  Company Number: US-RIGEL PHARMACEUTICALS, INC.-2019FOS000268

PATIENT
  Sex: Female
  Weight: 90.25 kg

DRUGS (3)
  1. FOLIC ACID GENERIC [Concomitant]
     Indication: PRODUCT USED FOR UNKNOWN INDICATION
  2. TARKA [Concomitant]
     Active Substance: TRANDOLAPRIL\VERAPAMIL HYDROCHLORIDE
     Indication: PRODUCT USED FOR UNKNOWN INDICATION
  3. TAVALISSE [Suspect]
     Active Substance: FOSTAMATINIB
     Indication: IMMUNE THROMBOCYTOPENIC PURPURA
     Dosage: 100 MG, BID
     Route: 048

REACTIONS (3)
  - Drooling [Unknown]
  - Nausea [Recovering/Resolving]
  - Vomiting [Recovering/Resolving]
